FAERS Safety Report 8057932-5 (Version None)
Quarter: 2011Q4

REPORT INFORMATION
  Report Type: 
  Country: None (occurrence: None)
  Receive Date: 20111220
  Receipt Date: 20101130
  Transmission Date: 20120403
  Serious: No
  Sender: FDA-Public Use
  Company Number: 2010005701

PATIENT
  Sex: Female
  Weight: 54.4316 kg

DRUGS (3)
  1. FENTANYL-100 [Concomitant]
  2. OXYCONTIN [Concomitant]
  3. OTFC (ORAL TRANSMUCOSAL FENTANYL CITRATE) (GENERIC ACTIQ) (FENTANYL CI [Suspect]
     Indication: AUTOIMMUNE DISORDER
     Dosage: 1200 MCG (600 MCG, 2 IN 1 D), BU
     Route: 002
     Dates: start: 20090601

REACTIONS (5)
  - FEMALE GENITAL OPERATION [None]
  - BONE DISORDER [None]
  - DRUG INEFFECTIVE FOR UNAPPROVED INDICATION [None]
  - TRACHEAL DISORDER [None]
  - DRUG ADMINISTRATION ERROR [None]
